FAERS Safety Report 15116560 (Version 1)
Quarter: 2018Q3

REPORT INFORMATION
  Report Type: Spontaneous
  Country: US (occurrence: US)
  Receive Date: 20180706
  Receipt Date: 20180706
  Transmission Date: 20181010
  Serious: Yes (Other)
  Sender: FDA-Public Use
  Company Number: US-BAYER-2018-125575

PATIENT
  Age: 82 Year
  Sex: Male
  Weight: 99 kg

DRUGS (3)
  1. CITRUCEL [Concomitant]
     Active Substance: METHYLCELLULOSE (4000 MPA.S)
     Dosage: UNK
  2. MIRALAX [Suspect]
     Active Substance: POLYETHYLENE GLYCOL 3350
     Indication: GASTROINTESTINAL DISORDER
     Dosage: 17 G, UNK
     Route: 048
     Dates: start: 201802
  3. PREPARATION H [AESC HIPPOC,BUTYL AMINOBENZ,HALIBUT?LIVER OIL,YEAST [Concomitant]
     Dosage: UNK

REACTIONS (3)
  - Drug effect incomplete [Unknown]
  - Gastrointestinal haemorrhage [Recovering/Resolving]
  - Faeces hard [Unknown]

NARRATIVE: CASE EVENT DATE: 20180701
